FAERS Safety Report 8182944-0 (Version None)
Quarter: 2012Q1

REPORT INFORMATION
  Report Type: 
  Country: None (occurrence: None)
  Receive Date: 20120305
  Receipt Date: 20120221
  Transmission Date: 20120608
  Serious: Yes (Hospitalization)
  Sender: FDA-Public Use
  Company Number: DE-RANBAXY-2009RR-25675

PATIENT
  Age: 69 Year
  Sex: Male
  Weight: 84 kg

DRUGS (9)
  1. ACETAMINOPHEN [Suspect]
     Indication: PROCEDURAL PAIN
     Dosage: 500 MG, TID
     Route: 048
     Dates: start: 20090226, end: 20090227
  2. RAMIPRIL [Suspect]
     Indication: HYPERTENSION
     Dosage: UNK
     Route: 048
     Dates: start: 20000101
  3. CEFUROXIME [Concomitant]
     Indication: INFECTION PROPHYLAXIS
     Dosage: UNK
     Route: 041
     Dates: start: 20090224, end: 20090224
  4. BERLOSIN [Concomitant]
     Indication: PROCEDURAL PAIN
     Dosage: UNK
     Route: 048
     Dates: start: 20090226, end: 20090227
  5. FLOTRIN [Concomitant]
     Indication: BENIGN PROSTATIC HYPERPLASIA
     Dosage: UNK
     Route: 048
     Dates: start: 20050101
  6. OMEPRAZOLE [Suspect]
     Indication: PROPHYLAXIS AGAINST GASTROINTESTINAL ULCER
     Dosage: 40 MG, QD
     Route: 048
     Dates: start: 20090225
  7. BUPRENORPHINE [Concomitant]
     Indication: PROCEDURAL PAIN
     Dosage: UNK
     Route: 062
     Dates: start: 20090224, end: 20090302
  8. VOLTAREN [Suspect]
     Indication: PROCEDURAL PAIN
     Dosage: UNK
     Route: 048
     Dates: start: 20090225, end: 20090227
  9. IBUPROFEN TABLETS [Suspect]
     Indication: OSTEOARTHRITIS
     Dosage: UNK
     Route: 048
     Dates: start: 20070101, end: 20090220

REACTIONS (1)
  - PANCREATITIS [None]
